FAERS Safety Report 5618218-9 (Version None)
Quarter: 2008Q1

REPORT INFORMATION
  Report Type: 
  Country: None (occurrence: None)
  Receive Date: 20080207
  Receipt Date: 20080130
  Transmission Date: 20080703
  Serious: Yes (Other)
  Sender: FDA-Public Use
  Company Number: IT-JNJFOC-20080200727

PATIENT

DRUGS (1)
  1. CAELYX [Suspect]
     Indication: BREAST CANCER METASTATIC

REACTIONS (1)
  - HEPATOTOXICITY [None]
